FAERS Safety Report 25446027 (Version 1)
Quarter: 2025Q2

REPORT INFORMATION
  Report Type: Spontaneous
  Country: IT (occurrence: IT)
  Receive Date: 20250617
  Receipt Date: 20250617
  Transmission Date: 20250717
  Serious: Yes (Other)
  Sender: GILEAD
  Company Number: IT-GILEAD-2025-0717040

PATIENT
  Sex: Female

DRUGS (1)
  1. TRODELVY [Suspect]
     Active Substance: SACITUZUMAB GOVITECAN-HZIY
     Indication: Triple negative breast cancer
     Route: 065

REACTIONS (4)
  - Metastases to bone [Unknown]
  - Cardiac disorder [Unknown]
  - Vomiting [Unknown]
  - Alopecia [Unknown]
